FAERS Safety Report 9754340 (Version 1)
Quarter: 2013Q4

REPORT INFORMATION
  Report Type: Spontaneous
  Country: JP (occurrence: JP)
  Receive Date: 20131213
  Receipt Date: 20131213
  Transmission Date: 20140711
  Serious: Yes (Other)
  Sender: FDA-Public Use
  Company Number: JP-ABBVIE-13P-087-1178076-00

PATIENT
  Age: 72 Year
  Sex: Male
  Weight: 51.44 kg

DRUGS (7)
  1. SEVOFLURANE [Suspect]
     Indication: MAINTENANCE OF ANAESTHESIA
  2. REMIFENTANIL [Suspect]
     Indication: INDUCTION OF ANAESTHESIA
  3. REMIFENTANIL [Suspect]
     Indication: MAINTENANCE OF ANAESTHESIA
  4. LIDOCAINE [Suspect]
     Indication: INDUCTION OF ANAESTHESIA
  5. PROPOFOL [Suspect]
     Indication: INDUCTION OF ANAESTHESIA
  6. ROCURONIUM [Suspect]
     Indication: HYPOTONIA
  7. OXYGEN [Concomitant]
     Indication: MAINTENANCE OF ANAESTHESIA

REACTIONS (4)
  - Atrioventricular block first degree [Recovered/Resolved]
  - Ventricular tachycardia [Recovered/Resolved]
  - Ventricular fibrillation [Recovered/Resolved]
  - Cardiac arrest [Recovered/Resolved]
